FAERS Safety Report 10233068 (Version 2)
Quarter: 2014Q3

REPORT INFORMATION
  Report Type: Spontaneous
  Country: FR (occurrence: FR)
  Receive Date: 20140612
  Receipt Date: 20140707
  Transmission Date: 20150326
  Serious: Yes (Hospitalization, Congenital Anomaly)
  Sender: FDA-Public Use
  Company Number: FR-TEVA-486292ISR

PATIENT
  Age: 4 Month
  Sex: Female

DRUGS (1)
  1. COPAXONE [Suspect]
     Active Substance: GLATIRAMER ACETATE
     Route: 058
     Dates: start: 201107, end: 201209

REACTIONS (4)
  - Quadriparesis [Not Recovered/Not Resolved]
  - Hypotonia [Unknown]
  - Extrapyramidal disorder [Unknown]
  - Periventricular leukomalacia [Unknown]

NARRATIVE: CASE EVENT DATE: 201206
